FAERS Safety Report 8009471-5 (Version None)
Quarter: 2011Q4

REPORT INFORMATION
  Report Type: 
  Country: None (occurrence: None)
  Receive Date: 20111227
  Receipt Date: 20111212
  Transmission Date: 20120403
  Serious: Yes (Hospitalization)
  Sender: FDA-Public Use
  Company Number: JP-PFIZER INC-2011313809

PATIENT
  Age: 92 Year
  Sex: Female

DRUGS (11)
  1. ALLOPURINOL [Concomitant]
  2. ASPIRIN [Concomitant]
  3. RABEPRAZOLE SODIUM [Concomitant]
  4. OPALMON [Concomitant]
  5. MAGMITT [Concomitant]
  6. RISEDRONATE SODIUM [Concomitant]
  7. AMLODIPINE [Concomitant]
  8. SALMETEROL XINAFOATE [Concomitant]
  9. CELECOXIB [Suspect]
     Indication: RHEUMATOID ARTHRITIS
     Dosage: 400 MG, DAILY
     Route: 048
  10. DOGMATYL [Concomitant]
  11. RIMATIL [Concomitant]

REACTIONS (1)
  - ATRIOVENTRICULAR BLOCK COMPLETE [None]
